FAERS Safety Report 10029308 (Version 1)
Quarter: 2014Q1

REPORT INFORMATION
  Report Type: Spontaneous
  Country: BR (occurrence: BR)
  Receive Date: 20140321
  Receipt Date: 20140321
  Transmission Date: 20141002
  Serious: Yes (Other)
  Sender: FDA-Public Use
  Company Number: PHHY2014BR032423

PATIENT
  Age: 19 Year
  Sex: Female

DRUGS (7)
  1. XOLAIR [Suspect]
     Indication: ASTHMA
     Dosage: 300 MG, EVERY 28 DAYS
     Dates: start: 200707
  2. XOLAIR [Suspect]
     Dosage: UNK UKN, UNK
     Dates: start: 200808
  3. XOLAIR [Suspect]
     Dosage: 300 MG, EVERY 28 DAYS
     Dates: end: 201110
  4. FORASEQ [Suspect]
     Dosage: UNK UKN, UNK
  5. OMEPRAZOLE [Suspect]
     Dosage: 20 MG, TWICE PER DAY
  6. SINGULAIR [Suspect]
     Dosage: 10 MG, UNK
  7. BUDECORT [Suspect]
     Dosage: UNK UKN, UNK

REACTIONS (4)
  - Oesophagitis [Unknown]
  - Gastrooesophageal reflux disease [Unknown]
  - Gastritis [Unknown]
  - Wheezing [Unknown]
